FAERS Safety Report 12948796 (Version 1)
Quarter: 2016Q4

REPORT INFORMATION
  Report Type: Spontaneous
  Country: US (occurrence: US)
  Receive Date: 20161117
  Receipt Date: 20161117
  Transmission Date: 20170207
  Serious: Yes (Hospitalization, Other)
  Sender: FDA-Public Use
  Company Number: US-ASTRAZENECA-2016SF20978

PATIENT
  Age: 2 Year
  Sex: Female

DRUGS (1)
  1. SEROQUEL [Suspect]
     Active Substance: QUETIAPINE FUMARATE
     Route: 065
     Dates: start: 20161007

REACTIONS (9)
  - Fall [Unknown]
  - Off label use [Unknown]
  - Loss of consciousness [Unknown]
  - Brain stem syndrome [Unknown]
  - Seizure [Unknown]
  - Dysphonia [Unknown]
  - Lethargy [Unknown]
  - Gait disturbance [Unknown]
  - Drug administered to patient of inappropriate age [Unknown]

NARRATIVE: CASE EVENT DATE: 2016
